FAERS Safety Report 4711357-6 (Version None)
Quarter: 2005Q3

REPORT INFORMATION
  Report Type: 
  Country: None (occurrence: None)
  Receive Date: 20050711
  Receipt Date: 20050518
  Transmission Date: 20060218
  Serious: Yes (Hospitalization)
  Sender: FDA-Public Use
  Company Number: 200504206

PATIENT
  Age: 45 Year
  Sex: Female

DRUGS (3)
  1. BOTOX COSMETIC [Suspect]
     Indication: SKIN WRINKLING
     Dosage: 33 UNITS PRN IM
     Route: 030
  2. ZANTAC [Concomitant]
  3. ADVAIR DISKUS 100/50 [Concomitant]

REACTIONS (16)
  - ASTHMA [None]
  - BEDRIDDEN [None]
  - CONDITION AGGRAVATED [None]
  - DEHYDRATION [None]
  - DRUG HYPERSENSITIVITY [None]
  - DRUG INEFFECTIVE [None]
  - FACIAL PARESIS [None]
  - GASTROOESOPHAGEAL REFLUX DISEASE [None]
  - HEADACHE [None]
  - HEART RATE INCREASED [None]
  - IMPAIRED WORK ABILITY [None]
  - INFECTIOUS MONONUCLEOSIS [None]
  - INFLUENZA LIKE ILLNESS [None]
  - NAUSEA [None]
  - PANCREATITIS [None]
  - TACHYCARDIA [None]
